FAERS Safety Report 5826975-1 (Version None)
Quarter: 2008Q3

REPORT INFORMATION
  Report Type: 
  Country: None (occurrence: None)
  Receive Date: 20080724
  Receipt Date: 20080709
  Transmission Date: 20090109
  Serious: Yes (Life-Threatening)
  Sender: FDA-Public Use
  Company Number: TNZFR200800126

PATIENT
  Age: 86 Year
  Sex: Female
  Weight: 63 kg

DRUGS (10)
  1. INNOHEP [Suspect]
     Indication: PROPHYLAXIS
     Dosage: (3500 IU, DAILY), SUBCUTANEOUS
     Route: 058
     Dates: start: 20080501, end: 20080618
  2. HEPARIN [Suspect]
     Indication: PROPHYLAXIS
     Dosage: INTRAVENOUS
     Route: 042
     Dates: end: 20080618
  3. HEPARIN CALCIUM [Suspect]
     Indication: PROPHYLAXIS
     Dosage: (1.5 ML), SUBCUTANEOUS
     Route: 058
     Dates: start: 20080619
  4. KARDEGIC (ACETYLSALICYLATE LYSINE) [Concomitant]
  5. COZAAR [Concomitant]
  6. INDAPAMIDE [Concomitant]
  7. STAGID (METFORMIN EMBONATE) [Concomitant]
  8. SMECTA (SMECTITE) [Concomitant]
  9. FLUCONAZOLE [Concomitant]
  10. ACETAMINOPHEN [Concomitant]

REACTIONS (1)
  - CEREBROVASCULAR ACCIDENT [None]
